FAERS Safety Report 8097869 (Version 12)
Quarter: 2015Q3

REPORT INFORMATION
  Report Type: Spontaneous
  Country: US (occurrence: US)
  Receive Date: 20110819
  Receipt Date: 20150827
  Transmission Date: 20151125
  Serious: Yes (Hospitalization, Other)
  Sender: FDA-Public Use
  Company Number: US-AMGEN-USASP2011040279

PATIENT
  Age: 76 Year
  Sex: Female
  Weight: 72.56 kg

DRUGS (3)
  1. ENBREL [Suspect]
     Active Substance: ETANERCEPT
     Indication: RHEUMATOID ARTHRITIS
     Dosage: 50 MG, WEEKLY
     Route: 058
     Dates: start: 19981130
  2. ENBREL [Suspect]
     Active Substance: ETANERCEPT
     Indication: PSORIASIS
     Dosage: UNK
     Route: 065
  3. ENBREL [Suspect]
     Active Substance: ETANERCEPT
     Indication: PSORIATIC ARTHROPATHY
     Dosage: UNK
     Route: 065

REACTIONS (27)
  - Cerebral arteriovenous malformation haemorrhagic [Not Recovered/Not Resolved]
  - Fatigue [Unknown]
  - Migraine [Unknown]
  - Injection site pain [Not Recovered/Not Resolved]
  - Joint destruction [Not Recovered/Not Resolved]
  - Brain injury [Not Recovered/Not Resolved]
  - Ligament sprain [Recovered/Resolved]
  - Memory impairment [Not Recovered/Not Resolved]
  - Ligament injury [Recovered/Resolved]
  - Pain in extremity [Not Recovered/Not Resolved]
  - Muscular weakness [Not Recovered/Not Resolved]
  - Throat tightness [Not Recovered/Not Resolved]
  - Injection site haemorrhage [Not Recovered/Not Resolved]
  - Rheumatoid arthritis [Recovered/Resolved]
  - Feeling hot [Not Recovered/Not Resolved]
  - Seizure [Not Recovered/Not Resolved]
  - Amnesia [Not Recovered/Not Resolved]
  - Stress [Unknown]
  - Arthralgia [Recovered/Resolved]
  - Gait disturbance [Not Recovered/Not Resolved]
  - Hearing impaired [Not Recovered/Not Resolved]
  - Pain [Not Recovered/Not Resolved]
  - Injection site bruising [Not Recovered/Not Resolved]
  - Musculoskeletal stiffness [Not Recovered/Not Resolved]
  - Visual impairment [Unknown]
  - Device failure [Unknown]
  - Headache [Recovered/Resolved]

NARRATIVE: CASE EVENT DATE: 19981130
